FAERS Safety Report 14378085 (Version 1)
Quarter: 2018Q1

REPORT INFORMATION
  Report Type: Spontaneous
  Country: GB (occurrence: GB)
  Receive Date: 20180111
  Receipt Date: 20180111
  Transmission Date: 20180509
  Serious: Yes (Death, Other)
  Sender: FDA-Public Use
  Company Number: GB-PFIZER INC-2018010785

PATIENT
  Age: 23 Year
  Sex: Female

DRUGS (4)
  1. PREGABALIN. [Suspect]
     Active Substance: PREGABALIN
     Route: 065
  2. DIAZEPAM. [Suspect]
     Active Substance: DIAZEPAM
     Dosage: UNK
     Route: 065
  3. TRAMADOL HCL [Suspect]
     Active Substance: TRAMADOL HYDROCHLORIDE
     Dosage: UNK
     Route: 065
  4. SERTRALINE HCL [Suspect]
     Active Substance: SERTRALINE HYDROCHLORIDE
     Route: 065

REACTIONS (22)
  - Therapy non-responder [Unknown]
  - Gait disturbance [Unknown]
  - Feeling cold [Unknown]
  - Schizophrenia [Unknown]
  - Dysarthria [Unknown]
  - Pneumonitis [Unknown]
  - Contusion [Unknown]
  - Tooth disorder [Unknown]
  - Aggression [Unknown]
  - Foaming at mouth [Unknown]
  - Anger [Unknown]
  - Pneumonia [Fatal]
  - Epilepsy [Unknown]
  - Overdose [Unknown]
  - Intentional self-injury [Unknown]
  - Dyspnoea [Unknown]
  - Loss of consciousness [Unknown]
  - Multiple sclerosis [Unknown]
  - Nervous system disorder [Unknown]
  - Drug dependence [Unknown]
  - Snoring [Unknown]
  - Lip discolouration [Unknown]
